FAERS Safety Report 4522247-6 (Version None)
Quarter: 2004Q4

REPORT INFORMATION
  Report Type: 
  Country: None (occurrence: None)
  Receive Date: 20041207
  Receipt Date: 20041117
  Transmission Date: 20050328
  Serious: Yes (Other)
  Sender: FDA-Public Use
  Company Number: USA041184052

PATIENT
  Age: 58 Year
  Sex: Female

DRUGS (4)
  1. HUMULIN 70/30 [Suspect]
  2. HUMALOG [Suspect]
     Dosage: 50 U DAY
  3. ACCUPRIL [Concomitant]
  4. GLUCOPHAGE [Concomitant]

REACTIONS (8)
  - BLOOD GLUCOSE DECREASED [None]
  - BLOOD GLUCOSE INCREASED [None]
  - INADEQUATE DIET [None]
  - MASTECTOMY [None]
  - MEDICAL DEVICE COMPLICATION [None]
  - PHARMACEUTICAL PRODUCT COMPLAINT [None]
  - STRESS SYMPTOMS [None]
  - VISUAL ACUITY REDUCED [None]
